FAERS Safety Report 9358148 (Version 2)
Quarter: 2013Q3

REPORT INFORMATION
  Report Type: Spontaneous
  Country: US (occurrence: US)
  Receive Date: 20130620
  Receipt Date: 20130909
  Transmission Date: 20140515
  Serious: No
  Sender: FDA-Public Use
  Company Number: US-PFIZER INC-2013182361

PATIENT
  Age: 58 Year
  Sex: Male

DRUGS (7)
  1. SUTENT [Suspect]
     Indication: RENAL CANCER
     Dosage: 50 MG, CYCLIC (28 DAYS ON 14 DAYS OFF)
     Route: 048
     Dates: start: 20130212, end: 201303
  2. SUTENT [Suspect]
     Dosage: 50 MG, CYCLIC (28 DAYS ON 14 DAYS OFF)
     Route: 048
     Dates: start: 20130508
  3. CRESTOR [Concomitant]
     Dosage: UNK
  4. LISINOPRIL [Concomitant]
     Dosage: UNK
  5. CHLORAL HYDRATE [Concomitant]
     Dosage: UNK
  6. LEVAQUIN [Concomitant]
     Dosage: UNK
  7. SINUS RELIEF [Concomitant]
     Dosage: UNK

REACTIONS (5)
  - Diarrhoea [Unknown]
  - Vomiting [Unknown]
  - Toothache [Recovered/Resolved]
  - Tooth fracture [Recovered/Resolved with Sequelae]
  - Loose tooth [Unknown]
